FAERS Safety Report 22361984 (Version 1)
Quarter: 2023Q2

REPORT INFORMATION
  Report Type: Report from Study
  Country: US (occurrence: US)
  Receive Date: 20230524
  Receipt Date: 20230524
  Transmission Date: 20230721
  Serious: Yes (Other)
  Sender: FDA-Public Use
  Company Number: US-GILEAD-2023-0626386

PATIENT
  Age: 36 Year
  Sex: Female

DRUGS (1)
  1. SACITUZUMAB GOVITECAN-HZIY [Suspect]
     Active Substance: SACITUZUMAB GOVITECAN-HZIY
     Indication: Breast cancer
     Dosage: 497 MG ON DAY 1 AND 8 ON A CONTINUOUS 21 DAY CYCLE
     Route: 042
     Dates: start: 20230413

REACTIONS (2)
  - Disease progression [Not Recovered/Not Resolved]
  - Weight fluctuation [Unknown]
